FAERS Safety Report 6110356-X (Version None)
Quarter: 2009Q1

REPORT INFORMATION
  Report Type: 
  Country: None (occurrence: None)
  Receive Date: 20090310
  Receipt Date: 20090227
  Transmission Date: 20090719
  Serious: Yes (Hospitalization, Congenital Anomaly)
  Sender: FDA-Public Use
  Company Number: SE-JNJFOC-20060903528

PATIENT
  Sex: Female
  Weight: 2.61 kg

DRUGS (3)
  1. TOPAMAX [Suspect]
     Dosage: IN MOTHER'S FIRST TRIMESTER
  2. TOPAMAX [Suspect]
     Indication: DRUG EXPOSURE DURING PREGNANCY
  3. LAMICTAL [Suspect]
     Indication: DRUG EXPOSURE DURING PREGNANCY

REACTIONS (8)
  - ATRIAL SEPTAL DEFECT [None]
  - CARDIAC MURMUR [None]
  - CONGENITAL FOOT MALFORMATION [None]
  - CONGENITAL HAND MALFORMATION [None]
  - PREMATURE BABY [None]
  - SYNDACTYLY [None]
  - VASCULAR ANOMALY [None]
  - VENTRICULAR SEPTAL DEFECT [None]
